FAERS Safety Report 8807534 (Version 1)
Quarter: 2012Q4

REPORT INFORMATION
  Report Type: 
  Country: GB (occurrence: GB)
  Receive Date: 20120925
  Receipt Date: 20120925
  Transmission Date: 20130627
  Serious: Yes (Life-Threatening, Other)
  Sender: FDA-Public Use
  Company Number: GB-PFIZER INC-2012231928

PATIENT
  Age: 78 Year
  Sex: Female

DRUGS (2)
  1. SUNITINIB MALATE [Suspect]
     Indication: RENAL CELL CARCINOMA
     Dosage: 37.5 mg, UNK
     Route: 048
     Dates: start: 20120727, end: 20120907
  2. ACETYLSALICYLIC ACID [Concomitant]

REACTIONS (2)
  - Subarachnoid haemorrhage [Unknown]
  - Aphasia [Recovered/Resolved]
